FAERS Safety Report 4590204-X (Version None)
Quarter: 2005Q1

REPORT INFORMATION
  Report Type: 
  Country: None (occurrence: None)
  Receive Date: 20050224
  Receipt Date: 20050214
  Transmission Date: 20050727
  Serious: Yes (Hospitalization)
  Sender: FDA-Public Use
  Company Number: FR-BRISTOL-MYERS SQUIBB COMPANY-12863205

PATIENT
  Age: 76 Year
  Sex: Male

DRUGS (5)
  1. ELISOR TABS 20 MG [Suspect]
     Route: 048
     Dates: start: 20040915, end: 20050105
  2. MONICOR [Suspect]
  3. BISOPROLOL FUMARATE [Suspect]
     Dates: end: 20041215
  4. KARDEGIC [Suspect]
  5. LODALES [Suspect]
     Route: 048
     Dates: start: 19910615, end: 20040815

REACTIONS (4)
  - DYSPNOEA [None]
  - PULMONARY FIBROSIS [None]
  - RESPIRATORY FAILURE [None]
  - THERAPY NON-RESPONDER [None]
